FAERS Safety Report 4868780-9 (Version None)
Quarter: 2005Q4

REPORT INFORMATION
  Report Type: 
  Country: None (occurrence: None)
  Receive Date: 20051223
  Receipt Date: 20051216
  Transmission Date: 20060501
  Serious: Yes (Disabling)
  Sender: FDA-Public Use
  Company Number: 2005146492

PATIENT
  Age: 62 Year
  Sex: Male
  Weight: 78 kg

DRUGS (7)
  1. SORTIS (ATORVASTATIN) [Suspect]
     Indication: MYOCARDIAL INFARCTION
     Dosage: 40 MG (1 IN 1 D), ORAL
     Route: 048
     Dates: start: 20050601
  2. METOPROLOL SUCCINATE [Suspect]
     Indication: MYOCARDIAL INFARCTION
     Dosage: 200 MG (100 MG, 2 IN 1 D), ORAL
     Route: 048
     Dates: start: 20050601
  3. CORVATON - SLOW RELEASE (MOLSIDOMINE) [Concomitant]
  4. LORZAAR (LOSARTAN POTASSIUM) [Concomitant]
  5. PLAVIX [Concomitant]
  6. ACETYLSALICYLIC ACID SRT [Concomitant]
  7. RAMIPRIL [Concomitant]

REACTIONS (3)
  - ALANINE AMINOTRANSFERASE INCREASED [None]
  - RAYNAUD'S PHENOMENON [None]
  - TRANSAMINASES INCREASED [None]
